FAERS Safety Report 11273326 (Version 1)
Quarter: 2015Q2

REPORT INFORMATION
  Report Type: Spontaneous
  Country: US (occurrence: None)
  Receive Date: 20150625
  Receipt Date: 20150625
  Transmission Date: 20150821
  Serious: No
  Sender: FDA-Public Use
  Company Number: A-NJ2015-114368

PATIENT
  Age: 73 Year
  Sex: Male

DRUGS (5)
  1. ADCIRCA [Concomitant]
     Active Substance: TADALAFIL
  2. OPSUMIT [Suspect]
     Active Substance: MACITENTAN
     Indication: PULMONARY ARTERIAL HYPERTENSION
     Route: 048
  3. ASPIRIN (ACETYLSALICYLIC ACID) [Concomitant]
     Active Substance: ASPIRIN
  4. VENTAVIS [Suspect]
     Active Substance: ILOPROST
     Indication: PULMONARY ARTERIAL HYPERTENSION
     Dosage: 2.5-5 MCG, 6-9XDAY, RESPIRATORY
     Route: 055
     Dates: start: 20150302
  5. OXYGEN. [Concomitant]
     Active Substance: OXYGEN

REACTIONS (17)
  - Somnolence [None]
  - Cough [None]
  - Headache [None]
  - Chest discomfort [None]
  - Oxygen saturation decreased [None]
  - Laceration [None]
  - Heart rate increased [None]
  - Blood glucose increased [None]
  - Flushing [None]
  - Feeling abnormal [None]
  - Fatigue [None]
  - Hypertension [None]
  - Anxiety [None]
  - Tremor [None]
  - Chills [None]
  - Asthenia [None]
  - Peripheral swelling [None]

NARRATIVE: CASE EVENT DATE: 20150302
